FAERS Safety Report 7860828-2 (Version None)
Quarter: 2011Q4

REPORT INFORMATION
  Report Type: 
  Country: None (occurrence: None)
  Receive Date: 20111027
  Receipt Date: 20111014
  Transmission Date: 20120403
  Serious: Yes (Other)
  Sender: FDA-Public Use
  Company Number: US-BAYER-2011-032831

PATIENT
  Age: 18 Year
  Weight: 104.31 kg

DRUGS (5)
  1. TOBRAMYCIN [Concomitant]
     Indication: CONJUNCTIVITIS
     Dosage: UNK
     Route: 047
     Dates: start: 20090502, end: 20091228
  2. YAZ [Suspect]
     Indication: ACNE
     Dosage: UNK
     Dates: start: 20060101, end: 20100608
  3. YAZ [Suspect]
     Indication: MENSTRUATION IRREGULAR
  4. ACETAMINOPHEN + COD. PHOSP. [Concomitant]
     Dosage: UNK
     Dates: start: 20090918
  5. METFORMIN HCL [Concomitant]
     Indication: GLUCOSE TOLERANCE IMPAIRED
     Dosage: 500 MG, BID
     Dates: start: 20060101, end: 20090716

REACTIONS (4)
  - INJURY [None]
  - CHOLELITHIASIS [None]
  - GALLBLADDER DISORDER [None]
  - PAIN [None]
